FAERS Safety Report 24834493 (Version 4)
Quarter: 2025Q1

REPORT INFORMATION
  Report Type: Spontaneous
  Country: US (occurrence: US)
  Receive Date: 20250113
  Receipt Date: 20250217
  Transmission Date: 20250408
  Serious: No
  Sender: BIOGEN
  Company Number: US-BIOGEN-2024BI01290701

PATIENT
  Age: 64 Year
  Sex: Female

DRUGS (16)
  1. AVONEX [Suspect]
     Active Substance: INTERFERON BETA-1A
     Indication: Multiple sclerosis
     Route: 050
     Dates: start: 20151106
  2. AVONEX [Suspect]
     Active Substance: INTERFERON BETA-1A
     Route: 050
     Dates: start: 20160105
  3. AVONEX [Suspect]
     Active Substance: INTERFERON BETA-1A
  4. AVONEX [Suspect]
     Active Substance: INTERFERON BETA-1A
  5. LUMIGAN [Concomitant]
     Active Substance: BIMATOPROST
     Route: 050
  6. ADDERALL [Concomitant]
     Active Substance: AMPHETAMINE ASPARTATE\AMPHETAMINE SULFATE\DEXTROAMPHETAMINE SACCHARATE\DEXTROAMPHETAMINE SULFATE
     Route: 050
  7. BIOTIN [Concomitant]
     Active Substance: BIOTIN
     Route: 050
  8. ALBUTEROL [Concomitant]
     Active Substance: ALBUTEROL
     Route: 050
  9. CALCIUM GLUCONATE [Concomitant]
     Active Substance: CALCIUM GLUCONATE
     Route: 050
  10. BETAMETHASONE DIPROPIONATE [Concomitant]
     Active Substance: BETAMETHASONE DIPROPIONATE
     Route: 050
  11. MODAFINIL [Concomitant]
     Active Substance: MODAFINIL
     Route: 050
  12. TYLENOL EXTRA STRENGTH [Concomitant]
     Active Substance: ACETAMINOPHEN
     Route: 050
  13. FLUOXETINE HYDROCHLORIDE [Concomitant]
     Active Substance: FLUOXETINE HYDROCHLORIDE
     Route: 050
  14. MONTELUKAST SODIUM [Concomitant]
     Active Substance: MONTELUKAST SODIUM
     Route: 050
  15. CLINDAMYCIN HYDROCHLORIDE [Concomitant]
     Active Substance: CLINDAMYCIN HYDROCHLORIDE
     Route: 050
  16. MOMETASONE FUROATE [Concomitant]
     Active Substance: MOMETASONE FUROATE
     Route: 050

REACTIONS (19)
  - Drug ineffective [Unknown]
  - Blood sodium abnormal [Unknown]
  - Osteopenia [Unknown]
  - Head injury [Unknown]
  - Rib fracture [Unknown]
  - Visual impairment [Unknown]
  - Food poisoning [Unknown]
  - Secondary progressive multiple sclerosis [Unknown]
  - Neuropathy peripheral [Unknown]
  - Drug withdrawal syndrome [Unknown]
  - Glaucoma [Unknown]
  - Anxiety [Unknown]
  - Blood sodium decreased [Unknown]
  - Fall [Recovered/Resolved]
  - Headache [Unknown]
  - Injection site bruising [Unknown]
  - Fatigue [Unknown]
  - Dizziness [Unknown]
  - Urinary tract infection [Unknown]

NARRATIVE: CASE EVENT DATE: 20240201
